FAERS Safety Report 4683063-8 (Version None)
Quarter: 2005Q2

REPORT INFORMATION
  Report Type: 
  Country: None (occurrence: None)
  Receive Date: 20050602
  Receipt Date: 20050307
  Transmission Date: 20051028
  Serious: No
  Sender: FDA-Public Use
  Company Number: USA050392565

PATIENT
  Age: 71 Year
  Sex: Male

DRUGS (6)
  1. CYMBALTA [Suspect]
     Indication: HYPOAESTHESIA
     Dosage: 60 MG AT BEDTIME
     Dates: start: 20050106
  2. CIALIS [Concomitant]
  3. PLENDIL [Concomitant]
  4. VITAMIN B6 [Concomitant]
  5. NEXIUM [Concomitant]
  6. HYZAAR [Concomitant]

REACTIONS (1)
  - MALE SEXUAL DYSFUNCTION [None]
